FAERS Safety Report 8325113-3 (Version None)
Quarter: 2012Q2

REPORT INFORMATION
  Report Type: 
  Country: None (occurrence: None)
  Receive Date: 20120501
  Receipt Date: 20120423
  Transmission Date: 20120825
  Serious: Yes (Hospitalization)
  Sender: FDA-Public Use
  Company Number: BR-ASTRAZENECA-2012SE26879

PATIENT
  Age: 68 Year
  Sex: Female

DRUGS (3)
  1. CRESTOR [Suspect]
     Route: 048
     Dates: start: 20120201
  2. METFORMIN HYDROCHLORIDE [Concomitant]
     Indication: DIABETES MELLITUS
  3. CRESTOR [Suspect]
     Route: 048
     Dates: start: 20090101, end: 20111201

REACTIONS (3)
  - INSOMNIA [None]
  - POST PROCEDURAL INFECTION [None]
  - URINARY TRACT INFECTION [None]
